FAERS Safety Report 4519190-5 (Version None)
Quarter: 2004Q4

REPORT INFORMATION
  Report Type: 
  Country: None (occurrence: None)
  Receive Date: 20041201
  Receipt Date: 20041116
  Transmission Date: 20050328
  Serious: Yes (Hospitalization)
  Sender: FDA-Public Use
  Company Number: 2004CG02328

PATIENT
  Age: 71 Year
  Sex: Male
  Weight: 70 kg

DRUGS (2)
  1. EMLA [Suspect]
     Indication: LOCAL ANAESTHESIA
     Dates: start: 20041001, end: 20041001
  2. BETADINE [Suspect]
     Indication: INFECTION PROPHYLAXIS
     Dates: start: 20041001, end: 20041001

REACTIONS (5)
  - DRUG INTERACTION [None]
  - EPIDURITIS [None]
  - PAIN [None]
  - PUNCTURE SITE REACTION [None]
  - STAPHYLOCOCCAL INFECTION [None]
